FAERS Safety Report 7242769-7 (Version None)
Quarter: 2011Q1

REPORT INFORMATION
  Report Type: 
  Country: None (occurrence: None)
  Receive Date: 20110125
  Receipt Date: 20110112
  Transmission Date: 20110831
  Serious: Yes (Death)
  Sender: FDA-Public Use
  Company Number: US-KINGPHARMUSA00001-K201100090

PATIENT
  Sex: Male

DRUGS (1)
  1. EMBEDA [Suspect]
     Indication: PAIN
     Dosage: UNK

REACTIONS (2)
  - OVERDOSE [None]
  - DEATH [None]
